FAERS Safety Report 7021560-0 (Version None)
Quarter: 2010Q3

REPORT INFORMATION
  Report Type: 
  Country: None (occurrence: None)
  Receive Date: 20100928
  Receipt Date: 20100915
  Transmission Date: 20110219
  Serious: Yes (Hospitalization)
  Sender: FDA-Public Use
  Company Number: 018861

PATIENT
  Sex: Male
  Weight: 93 kg

DRUGS (4)
  1. CIMZIA [Suspect]
     Indication: CROHN'S DISEASE
     Dosage: (TWO SHOTS MONTHLY SUBCUTANEOUS)
     Route: 058
     Dates: start: 20100424
  2. ZOFRAN [Concomitant]
  3. PROTONIX [Concomitant]
  4. LORTAB [Concomitant]

REACTIONS (3)
  - CONDITION AGGRAVATED [None]
  - IMPAIRED HEALING [None]
  - POSTOPERATIVE ABSCESS [None]
